FAERS Safety Report 4679468-1 (Version None)
Quarter: 2005Q2

REPORT INFORMATION
  Report Type: 
  Country: None (occurrence: None)
  Receive Date: 20050531
  Receipt Date: 20050517
  Transmission Date: 20051028
  Serious: Yes (Other)
  Sender: FDA-Public Use
  Company Number: B0359445A

PATIENT
  Sex: Female

DRUGS (2)
  1. PAXIL [Suspect]
     Indication: DEPRESSION
     Dosage: SEE DOSAGE TEXT
     Dates: end: 20040301
  2. ZOPICLONE [Concomitant]

REACTIONS (7)
  - ABNORMAL DREAMS [None]
  - AGGRESSION [None]
  - COMPLETED SUICIDE [None]
  - DRUG INEFFECTIVE [None]
  - DRUG WITHDRAWAL SYNDROME [None]
  - POLYDIPSIA [None]
  - SLEEP DISORDER [None]
